FAERS Safety Report 9391516 (Version 1)
Quarter: 2013Q3

REPORT INFORMATION
  Report Type: Report from Study
  Country: CA (occurrence: CA)
  Receive Date: 20130709
  Receipt Date: 20130709
  Transmission Date: 20140515
  Serious: Yes (Other)
  Sender: FDA-Public Use
  Company Number: PHHY2013CA071859

PATIENT
  Age: 23 Year
  Sex: Male

DRUGS (10)
  1. CLOZARIL [Suspect]
     Dosage: UNK UKN, UNK
     Dates: start: 20040910, end: 20080307
  2. ZUCLOPENTHIXOL [Concomitant]
     Dosage: 75 MG, UNK
     Route: 030
  3. OLANZAPINE [Concomitant]
     Dosage: UNK UKN, UNK
  4. CLONAZEPAM [Concomitant]
     Dosage: 0.5 MG, TID
  5. BENZTROPINE [Concomitant]
     Dosage: 1 MG, BID
  6. ATORVASTATIN [Concomitant]
     Dosage: UNK UKN, UNK
  7. LEVOTHYROXINE [Concomitant]
     Dosage: 75 UG, DAILY
  8. FERROUS FUMARATE [Concomitant]
     Dosage: 300 MG, TID
  9. VITAMIIN C [Concomitant]
     Dosage: 250 MG, TID
  10. PANTOPRAZOLE [Concomitant]
     Dosage: 40 MG, BID

REACTIONS (3)
  - Schizophrenia [Unknown]
  - Sinus arrhythmia [Unknown]
  - Bundle branch block right [Unknown]
